FAERS Safety Report 9530254 (Version 2)
Quarter: 2013Q4

REPORT INFORMATION
  Report Type: Report from Study
  Country: CA (occurrence: CA)
  Receive Date: 20130917
  Receipt Date: 20131031
  Transmission Date: 20140711
  Serious: Yes (Hospitalization)
  Sender: FDA-Public Use
  Company Number: PHHY2013CA103133

PATIENT
  Age: 82 Year
  Sex: Female

DRUGS (6)
  1. ACLASTA [Suspect]
     Indication: OSTEOPOROSIS
     Dosage: UNK UKN, UNK
     Route: 042
     Dates: start: 20120919
  2. GALANTAMINE [Concomitant]
     Dosage: 24 MG, QD
  3. CITALOPRAM [Concomitant]
     Dosage: 10 MG, QD
  4. RAMIPRIL [Concomitant]
     Dosage: 2.5 MG, QD
  5. COLACE [Concomitant]
  6. VITAMIN D [Concomitant]

REACTIONS (3)
  - Fall [Unknown]
  - Contusion [Unknown]
  - Periorbital contusion [Unknown]
